FAERS Safety Report 5567480-X (Version None)
Quarter: 2007Q4

REPORT INFORMATION
  Report Type: 
  Country: None (occurrence: None)
  Receive Date: 20071219
  Receipt Date: 20071217
  Transmission Date: 20080405
  Serious: Yes (Other)
  Sender: FDA-Public Use
  Company Number: US-MERCK-0712USA02283

PATIENT

DRUGS (1)
  1. ISENTRESS [Suspect]
     Route: 048
     Dates: start: 20071024, end: 20071119

REACTIONS (1)
  - DIFFUSE LARGE B-CELL LYMPHOMA [None]
